FAERS Safety Report 4437438-2 (Version None)
Quarter: 2004Q3

REPORT INFORMATION
  Report Type: 
  Country: None (occurrence: None)
  Receive Date: 20040830
  Receipt Date: 20040825
  Transmission Date: 20050211
  Serious: Yes (Hospitalization)
  Sender: FDA-Public Use
  Company Number: PHNU2004DE03033

PATIENT
  Age: 55 Year
  Sex: Male

DRUGS (8)
  1. DIOVAN [Suspect]
     Indication: HYPERTENSION
     Dosage: 80 MG, QD
     Route: 048
     Dates: end: 20040712
  2. DIOVAN [Suspect]
     Dosage: 80 MG, BID
     Route: 048
     Dates: start: 20040713
  3. OMEPRAZOLE [Concomitant]
  4. CATAPRES [Concomitant]
     Dosage: 150 MG, BID
     Route: 048
  5. DILATREND [Concomitant]
  6. MOTENS [Concomitant]
  7. ASPIRIN [Concomitant]
  8. MAGNESIUM VERLA TABLET [Concomitant]
     Dosage: UNK, UNK

REACTIONS (5)
  - ANAPHYLACTIC SHOCK [None]
  - ARTHROPOD STING [None]
  - BLOOD PRESSURE DECREASED [None]
  - CONDITION AGGRAVATED [None]
  - HYPERSENSITIVITY [None]
